FAERS Safety Report 5527187-1 (Version None)
Quarter: 2007Q4

REPORT INFORMATION
  Report Type: 
  Country: None (occurrence: None)
  Receive Date: 20071121
  Receipt Date: 20071106
  Transmission Date: 20080405
  Serious: Yes (Other)
  Sender: FDA-Public Use
  Company Number: 8025476

PATIENT
  Sex: Female

DRUGS (1)
  1. KEPPRA [Suspect]
     Indication: CONVULSION

REACTIONS (4)
  - CONDITION AGGRAVATED [None]
  - DRUG DISPENSING ERROR [None]
  - GRAND MAL CONVULSION [None]
  - STOMATITIS NECROTISING [None]
